FAERS Safety Report 19436298 (Version 1)
Quarter: 2021Q2

REPORT INFORMATION
  Report Type: Spontaneous
  Country: IN (occurrence: IN)
  Receive Date: 20210618
  Receipt Date: 20210618
  Transmission Date: 20210717
  Serious: Yes (Other)
  Sender: FDA-Public Use
  Company Number: IN-PFIZER INC-2021663112

PATIENT
  Age: 78 Year
  Sex: Male

DRUGS (9)
  1. PREDNISOLONE ACETATE. [Suspect]
     Active Substance: PREDNISOLONE ACETATE
     Indication: VISUAL IMPAIRMENT
     Dosage: 1 %, 2X/DAY
     Route: 061
  2. PREDNISOLONE ACETATE. [Suspect]
     Active Substance: PREDNISOLONE ACETATE
     Dosage: 1 % (EVERY HOUR)
     Route: 061
  3. CYCLATE [CYCLOPENTOLATE HYDROCHLORIDE] [Concomitant]
     Indication: KERATOPLASTY
     Dosage: 10 MG/ML, 3X/DAY
  4. METHYLPREDNISOLONE ACETATE. [Suspect]
     Active Substance: METHYLPREDNISOLONE ACETATE
     Indication: VISUAL IMPAIRMENT
     Dosage: 1 G, DAILY
     Route: 042
  5. PREDNISOLONE ACETATE. [Suspect]
     Active Substance: PREDNISOLONE ACETATE
     Dosage: 1 %, 2X/DAY
     Route: 061
  6. METHYLPREDNISOLONE ACETATE. [Suspect]
     Active Substance: METHYLPREDNISOLONE ACETATE
     Indication: TRANSPLANT REJECTION
     Dosage: 1 G, DAILY
     Route: 042
  7. PREDNISOLONE ACETATE. [Suspect]
     Active Substance: PREDNISOLONE ACETATE
     Indication: KERATOPLASTY
     Dosage: 1 %, 3X/DAY, (SUSPENSION)
     Route: 061
  8. PREDNISOLONE ACETATE. [Suspect]
     Active Substance: PREDNISOLONE ACETATE
     Dosage: 1 % (EVERY HOUR)
     Route: 061
  9. VIGAMOX [Concomitant]
     Active Substance: MOXIFLOXACIN HYDROCHLORIDE
     Indication: KERATOPLASTY
     Dosage: 5 MG/ML, 3X/DAY

REACTIONS (2)
  - Drug ineffective [Recovered/Resolved]
  - Ophthalmic herpes simplex [Recovered/Resolved]
